FAERS Safety Report 24289586 (Version 1)
Quarter: 2024Q3

REPORT INFORMATION
  Report Type: Spontaneous
  Country: DE (occurrence: DE)
  Receive Date: 20240906
  Receipt Date: 20240906
  Transmission Date: 20241017
  Serious: Yes (Disabling, Congenital Anomaly, Other)
  Sender: UCB
  Company Number: None

PATIENT
  Sex: Female
  Weight: 2.6 kg

DRUGS (5)
  1. LEVETIRACETAM [Suspect]
     Active Substance: LEVETIRACETAM
     Indication: Epilepsy
     Dosage: 2000 MILLIGRAM PER DAY
     Route: 064
     Dates: start: 20230311, end: 2023
  2. LEVETIRACETAM [Suspect]
     Active Substance: LEVETIRACETAM
     Dosage: 5000 MILLIGRAM PER DAY
     Route: 064
     Dates: start: 2023, end: 20231207
  3. LAMOTRIGINE [Suspect]
     Active Substance: LAMOTRIGINE
     Indication: Epilepsy
     Dosage: 50-0-100 MG/D
     Route: 064
     Dates: start: 20230311, end: 2023
  4. LAMOTRIGINE [Suspect]
     Active Substance: LAMOTRIGINE
     Dosage: 400 MILLIGRAM PER DAY
     Route: 064
     Dates: start: 2023, end: 20231207
  5. FOLIC ACID [Concomitant]
     Active Substance: FOLIC ACID
     Indication: Prophylaxis of neural tube defect
     Dosage: UNK
     Route: 064
     Dates: start: 20230311, end: 20231207

REACTIONS (3)
  - Limb reduction defect [Not Recovered/Not Resolved]
  - Maternal exposure during pregnancy [Unknown]
  - Overdose [Unknown]

NARRATIVE: CASE EVENT DATE: 20230101
